FAERS Safety Report 7183786-5 (Version None)
Quarter: 2010Q4

REPORT INFORMATION
  Report Type: 
  Country: None (occurrence: None)
  Receive Date: 20101222
  Receipt Date: 20101220
  Transmission Date: 20110411
  Serious: Yes (Hospitalization, Other)
  Sender: FDA-Public Use
  Company Number: US-TEVA-260567USA

PATIENT
  Age: 78 Year
  Sex: Female

DRUGS (6)
  1. DOXORUBICIN HCL [Suspect]
  2. VINCRISTINE [Suspect]
  3. ETOPOSIDE [Suspect]
  4. CYCLOPHOSPHAMIDE [Suspect]
  5. RITUXIMAB [Suspect]
  6. PREDNISONE [Suspect]

REACTIONS (1)
  - HEPATITIS B [None]
